FAERS Safety Report 16549829 (Version 2)
Quarter: 2019Q3

REPORT INFORMATION
  Report Type: Spontaneous
  Country: US (occurrence: US)
  Receive Date: 20190710
  Receipt Date: 20190713
  Transmission Date: 20191004
  Serious: No
  Sender: FDA-Public Use
  Company Number: US-JNJFOC-20190709223

PATIENT
  Age: 60 Year
  Sex: Female
  Weight: 70.37 kg

DRUGS (1)
  1. WOMENS ROGAINE UNSCENTED [Suspect]
     Active Substance: MINOXIDIL
     Indication: ALOPECIA
     Dosage: HALF A CAPFUL
     Route: 061
     Dates: start: 20150731

REACTIONS (2)
  - Application site discharge [Recovering/Resolving]
  - Seborrhoeic dermatitis [Recovering/Resolving]
